FAERS Safety Report 7592896-X (Version None)
Quarter: 2011Q3

REPORT INFORMATION
  Report Type: 
  Country: None (occurrence: None)
  Receive Date: 20110706
  Receipt Date: 20110627
  Transmission Date: 20111222
  Serious: Yes (Hospitalization, Other)
  Sender: FDA-Public Use
  Company Number: US-ASTRAZENECA-2011SE22853

PATIENT
  Age: 48 Year
  Sex: Female
  Weight: 118.8 kg

DRUGS (5)
  1. CYMBALTA [Concomitant]
  2. MINERAL OIL [Concomitant]
  3. NEXIUM [Suspect]
     Route: 048
  4. ATARAX [Concomitant]
  5. MIRALAX [Concomitant]

REACTIONS (12)
  - INTESTINAL RESECTION [None]
  - GASTRIC CANCER [None]
  - SURGERY [None]
  - ABDOMINAL DISTENSION [None]
  - CONSTIPATION [None]
  - ABDOMINAL PAIN [None]
  - OOPHORECTOMY [None]
  - NAUSEA [None]
  - VOMITING [None]
  - COLECTOMY [None]
  - INTESTINAL OBSTRUCTION [None]
  - DIVERTICULITIS [None]
